FAERS Safety Report 9285414 (Version 2)
Quarter: 2013Q2

REPORT INFORMATION
  Report Type: Spontaneous
  Country: US (occurrence: US)
  Receive Date: 20130513
  Receipt Date: 20130604
  Transmission Date: 20140414
  Serious: Yes (Death)
  Sender: FDA-Public Use
  Company Number: US-PFIZER INC-2013146971

PATIENT
  Age: 59 Year
  Sex: Female
  Weight: 51.7 kg

DRUGS (4)
  1. SUTENT [Suspect]
     Indication: NEOPLASM MALIGNANT
     Dosage: 12.5 MG, 1X/DAY, 2 WEEKS ON/2 WEEKS OFF
     Dates: start: 20130419
  2. LABETALOL [Concomitant]
  3. FERROUS SULFATE [Concomitant]
  4. PROCRIT [Concomitant]

REACTIONS (12)
  - Death [Fatal]
  - Diarrhoea [Unknown]
  - Nausea [Not Recovered/Not Resolved]
  - Abdominal discomfort [Unknown]
  - Anxiety [Unknown]
  - Depressed mood [Unknown]
  - Feeling jittery [Unknown]
  - Fatigue [Not Recovered/Not Resolved]
  - Psychomotor hyperactivity [Unknown]
  - Pain of skin [Unknown]
  - Oral pain [Unknown]
  - Dysgeusia [Unknown]
